FAERS Safety Report 22936654 (Version 6)
Quarter: 2023Q4

REPORT INFORMATION
  Report Type: Spontaneous
  Country: CA (occurrence: CA)
  Receive Date: 20230912
  Receipt Date: 20231212
  Transmission Date: 20240109
  Serious: Yes (Other)
  Sender: FDA-Public Use
  Company Number: CA-PFIZER INC-202300130541

PATIENT
  Age: 57 Year
  Sex: Female

DRUGS (4)
  1. XELJANZ XR [Suspect]
     Active Substance: TOFACITINIB CITRATE
     Indication: Rheumatoid arthritis
     Dosage: 11 MG, 1X/DAY
     Route: 048
     Dates: start: 20210906
  2. FOLIC ACID [Concomitant]
     Active Substance: FOLIC ACID
     Dosage: 1 DF, WEEKLY
     Route: 065
  3. METHOTREXATE [Concomitant]
     Active Substance: METHOTREXATE
     Indication: Rheumatoid arthritis
     Dosage: 6 DF, WEEKLY
     Route: 065
  4. VITAMIN D3 [Concomitant]
     Active Substance: CHOLECALCIFEROL
     Dosage: 2000 UG, DAILY (PER DAY)
     Route: 065

REACTIONS (5)
  - Nephrolithiasis [Not Recovered/Not Resolved]
  - Therapeutic product effect incomplete [Recovering/Resolving]
  - Nasopharyngitis [Recovered/Resolved]
  - Influenza [Recovered/Resolved]
  - Tooth infection [Unknown]
